FAERS Safety Report 11130120 (Version 1)
Quarter: 2015Q2

REPORT INFORMATION
  Report Type: Spontaneous
  Country: US (occurrence: US)
  Receive Date: 20150521
  Receipt Date: 20150521
  Transmission Date: 20150821
  Serious: No
  Sender: FDA-Public Use
  Company Number: US-BAXTER-2015BAX024985

PATIENT
  Age: 76 Year
  Sex: Female

DRUGS (1)
  1. 5% DEXTROSE INJECTION, USP [Suspect]
     Active Substance: DEXTROSE
     Indication: PRODUCT USED FOR UNKNOWN INDICATION
     Dosage: 50 ML/HR
     Route: 042

REACTIONS (2)
  - Blood glucose decreased [Unknown]
  - Device infusion issue [Unknown]

NARRATIVE: CASE EVENT DATE: 20150503
